FAERS Safety Report 11687598 (Version 11)
Quarter: 2019Q1

REPORT INFORMATION
  Report Type: Spontaneous
  Country: US (occurrence: US)
  Receive Date: 20151030
  Receipt Date: 20190321
  Transmission Date: 20190417
  Serious: Yes (Congenital Anomaly, Other)
  Sender: FDA-Public Use
  Company Number: PHEH2015US022080

PATIENT
  Sex: Male

DRUGS (2)
  1. ONDANSETRON. [Suspect]
     Active Substance: ONDANSETRON
     Indication: FOETAL EXPOSURE DURING PREGNANCY
     Dosage: MOTHER DOSE: 08 MG, PRN
     Route: 064
  2. ZOFRAN [Suspect]
     Active Substance: ONDANSETRON HYDROCHLORIDE
     Indication: FOETAL EXPOSURE DURING PREGNANCY
     Dosage: UNK
     Route: 064

REACTIONS (20)
  - Heart disease congenital [Unknown]
  - Otitis media chronic [Unknown]
  - Gastrooesophageal reflux disease [Unknown]
  - Ear pain [Unknown]
  - Foetal exposure during pregnancy [Unknown]
  - Anxiety [Unknown]
  - Anhedonia [Unknown]
  - Pharyngitis [Unknown]
  - Irregular breathing [Unknown]
  - Pain [Unknown]
  - Injury [Unknown]
  - Cough [Unknown]
  - Cardiac murmur [Unknown]
  - Emotional distress [Unknown]
  - Cardiac septal defect [Unknown]
  - Atrial septal defect [Unknown]
  - Tonsillitis [Unknown]
  - Multiple congenital abnormalities [Unknown]
  - Febrile convulsion [Unknown]
  - Constipation [Unknown]
